FAERS Safety Report 7129727-8 (Version None)
Quarter: 2010Q4

REPORT INFORMATION
  Report Type: 
  Country: None (occurrence: None)
  Receive Date: 20101130
  Receipt Date: 20101125
  Transmission Date: 20110411
  Serious: Yes (Death, Hospitalization)
  Sender: FDA-Public Use
  Company Number: SE-ABBOTT-10P-150-0687632-00

PATIENT
  Sex: Female

DRUGS (11)
  1. HUMIRA [Suspect]
     Indication: RHEUMATOID ARTHRITIS
     Route: 058
     Dates: start: 20080408, end: 20090702
  2. COZAAR [Concomitant]
     Indication: PRODUCT USED FOR UNKNOWN INDICATION
  3. METOPROLOL [Concomitant]
     Indication: PRODUCT USED FOR UNKNOWN INDICATION
  4. FOLACIN [Concomitant]
     Indication: PRODUCT USED FOR UNKNOWN INDICATION
  5. ACETAMINOPHEN [Concomitant]
     Indication: PRODUCT USED FOR UNKNOWN INDICATION
  6. DUROFERON FE2+ [Concomitant]
     Indication: PRODUCT USED FOR UNKNOWN INDICATION
  7. PREDNISOLONE [Concomitant]
     Indication: PRODUCT USED FOR UNKNOWN INDICATION
  8. FURIX [Concomitant]
     Indication: PRODUCT USED FOR UNKNOWN INDICATION
  9. IMDUR [Concomitant]
     Indication: PRODUCT USED FOR UNKNOWN INDICATION
  10. TRADOLAN [Concomitant]
     Indication: PRODUCT USED FOR UNKNOWN INDICATION
  11. IDEOS [Concomitant]
     Indication: PRODUCT USED FOR UNKNOWN INDICATION
     Dosage: THE FORM STRENGTH IS 500MG/400IE

REACTIONS (5)
  - ABSCESS [None]
  - DIARRHOEA [None]
  - HYPOPHAGIA [None]
  - VENOUS THROMBOSIS LIMB [None]
  - VOMITING [None]
